FAERS Safety Report 4587320-5 (Version None)
Quarter: 2005Q1

REPORT INFORMATION
  Report Type: 
  Country: None (occurrence: None)
  Receive Date: 20050215
  Receipt Date: 20050204
  Transmission Date: 20050727
  Serious: Yes (Hospitalization)
  Sender: FDA-Public Use
  Company Number: 2005AP00992

PATIENT
  Age: 9 Year
  Sex: Male
  Weight: 40 kg

DRUGS (4)
  1. PROPOFOL [Suspect]
     Dosage: 120 MG ONCE
     Dates: start: 20040117
  2. FENTANYL [Suspect]
     Dosage: 40 MG ONCE
     Dates: start: 20040117
  3. SUCCINYLCHOLINE CHLORIDE [Suspect]
     Dosage: 80 MG ONCE
  4. SEVOFLURANE [Suspect]
     Dates: start: 20040117

REACTIONS (4)
  - BLOOD CREATINE PHOSPHOKINASE INCREASED [None]
  - HYPERCAPNIA [None]
  - HYPERKALAEMIA [None]
  - PYREXIA [None]
